FAERS Safety Report 7091016-8 (Version None)
Quarter: 2010Q4

REPORT INFORMATION
  Report Type: 
  Country: None (occurrence: None)
  Receive Date: 20101109
  Receipt Date: 20101028
  Transmission Date: 20110411
  Serious: Yes (Other)
  Sender: FDA-Public Use
  Company Number: JP-ELI_LILLY_AND_COMPANY-JP201011000918

PATIENT
  Age: 49 Year
  Sex: Male

DRUGS (8)
  1. GEMZAR [Suspect]
     Indication: LUNG ADENOCARCINOMA STAGE IV
     Dosage: 1000 MG/M2, OTHER
     Route: 042
     Dates: start: 20080401, end: 20080401
  2. GEMZAR [Suspect]
     Dosage: 800 MG/M2, OTHER
     Route: 042
     Dates: start: 20080501, end: 20080701
  3. CISPLATIN [Concomitant]
     Indication: LUNG ADENOCARCINOMA STAGE IV
     Dosage: 80 MG/M2, OTHER
     Route: 042
     Dates: start: 20080401, end: 20080401
  4. CISPLATIN [Concomitant]
     Dosage: 60 MG/M2, OTHER
     Route: 042
     Dates: start: 20080501, end: 20080701
  5. TENOFOVIR DISOPROXIL FUMARATE [Concomitant]
     Indication: HIV INFECTION
     Dosage: UNK, UNK
     Route: 048
     Dates: start: 19970101
  6. LAMIVUDINE [Concomitant]
     Indication: HIV INFECTION
     Route: 048
     Dates: start: 19970101
  7. ATAZANAVIR [Concomitant]
     Indication: HIV INFECTION
     Route: 048
     Dates: start: 19970101
  8. RITONAVIR [Concomitant]
     Indication: HIV INFECTION
     Route: 048
     Dates: start: 19970101

REACTIONS (5)
  - DECREASED APPETITE [None]
  - EXTRADURAL HAEMATOMA [None]
  - GRANULOCYTE COUNT DECREASED [None]
  - NEUTROPHIL COUNT DECREASED [None]
  - PLATELET TOXICITY [None]
